FAERS Safety Report 11664071 (Version 1)
Quarter: 2015Q4

REPORT INFORMATION
  Report Type: Spontaneous
  Country: US (occurrence: None)
  Receive Date: 20151026
  Receipt Date: 20151026
  Transmission Date: 20160304
  Serious: Yes (Other)
  Sender: FDA-Public Use
  Company Number: None

PATIENT
  Age: 9 Year
  Sex: Female
  Weight: 46.5 kg

DRUGS (2)
  1. GUANFACINE. [Suspect]
     Active Substance: GUANFACINE
     Route: 048
     Dates: start: 20150909, end: 20151009
  2. INTUNIV [Concomitant]
     Active Substance: GUANFACINE HYDROCHLORIDE

REACTIONS (9)
  - Headache [None]
  - Abnormal behaviour [None]
  - Nausea [None]
  - Product substitution issue [None]
  - Disturbance in attention [None]
  - Sleep attacks [None]
  - Abdominal pain upper [None]
  - Educational problem [None]
  - Feeling abnormal [None]

NARRATIVE: CASE EVENT DATE: 20150915
